FAERS Safety Report 14909977 (Version 3)
Quarter: 2018Q2

REPORT INFORMATION
  Report Type: Spontaneous
  Country: BR (occurrence: BR)
  Receive Date: 20180517
  Receipt Date: 20180531
  Transmission Date: 20180711
  Serious: Yes (Death, Hospitalization, Other)
  Sender: FDA-Public Use
  Company Number: BR-PFIZER INC-2018158421

PATIENT
  Age: 35 Year
  Sex: Male

DRUGS (1)
  1. SUTENT [Suspect]
     Active Substance: SUNITINIB MALATE
     Dosage: 50 MG, 2X/DAY (EVERY 12 HOURS)
     Dates: start: 20180221, end: 20180410

REACTIONS (6)
  - Ascites [Not Recovered/Not Resolved]
  - Pain [Recovered/Resolved]
  - Neoplasm progression [Unknown]
  - Product use issue [Unknown]
  - Death [Fatal]
  - Dyspnoea [Not Recovered/Not Resolved]

NARRATIVE: CASE EVENT DATE: 2018
